FAERS Safety Report 4461665-1 (Version None)
Quarter: 2004Q3

REPORT INFORMATION
  Report Type: 
  Country: None (occurrence: None)
  Receive Date: 20040924
  Receipt Date: 20040913
  Transmission Date: 20050211
  Serious: Yes (Hospitalization)
  Sender: FDA-Public Use
  Company Number: HQWYE996612JUL04

PATIENT
  Age: 4 Year
  Sex: Female
  Weight: 13.7 kg

DRUGS (21)
  1. RAPAMUNE [Suspect]
     Indication: IMMUNOSUPPRESSANT DRUG THERAPY
     Dosage: 0.5 MG 2X PER 1 DAY, INTRA-ABDOMINAL;  0.4 MG 2X PER 1 DAY, INTRA-ABDOMINAL
     Dates: start: 20020507, end: 20040809
  2. RAPAMUNE [Suspect]
     Indication: IMMUNOSUPPRESSANT DRUG THERAPY
     Dosage: 0.5 MG 2X PER 1 DAY, INTRA-ABDOMINAL;  0.4 MG 2X PER 1 DAY, INTRA-ABDOMINAL
     Dates: start: 20040810
  3. PREVACID [Concomitant]
  4. MIRAPEX [Concomitant]
  5. PROGRAF [Concomitant]
  6. NORVASC [Concomitant]
  7. PREDNISONE [Concomitant]
  8. BACTROBAN (MUPIROCIN) [Concomitant]
  9. ZYRTEC [Concomitant]
  10. ERYTHROMYCIN [Concomitant]
  11. BACLOFEN [Concomitant]
  12. VALCYTE [Concomitant]
  13. CARAFATE [Concomitant]
  14. SENOKOT [Concomitant]
  15. REGLAN [Concomitant]
  16. HYDRALAZINE HCL TAB [Concomitant]
  17. BENADRYL [Concomitant]
  18. ZOFRAN [Concomitant]
  19. TYLENOL [Concomitant]
  20. ZOPENEX (LEVOSALBUTAMOL) [Concomitant]
  21. GLYCERIN (GLYCEROL) [Concomitant]

REACTIONS (8)
  - APHTHOUS STOMATITIS [None]
  - GASTRIC ULCER [None]
  - HAEMATOCHEZIA [None]
  - HAEMATOCRIT DECREASED [None]
  - IMMUNOSUPPRESSION [None]
  - LYMPHADENOPATHY [None]
  - LYMPHOPROLIFERATIVE DISORDER [None]
  - PNEUMONIA [None]
